FAERS Safety Report 14453460 (Version 1)
Quarter: 2018Q1

REPORT INFORMATION
  Report Type: Spontaneous
  Country: US (occurrence: US)
  Receive Date: 20180127
  Receipt Date: 20180127
  Transmission Date: 20180509
  Serious: Yes (Other)
  Sender: FDA-Public Use
  Company Number: None

PATIENT
  Age: 78 Year
  Sex: Female
  Weight: 58.5 kg

DRUGS (7)
  1. OSELTAMIR [Suspect]
     Active Substance: OSELTAMIVIR
     Indication: INFLUENZA
     Route: 048
     Dates: start: 20180126, end: 20180127
  2. ZRYTEC [Concomitant]
  3. FLOUNASE [Concomitant]
  4. VITAMIN B STRESS COMPLEX [Concomitant]
  5. CALCIUM [Concomitant]
     Active Substance: CALCIUM
  6. SINGULAIR [Concomitant]
     Active Substance: MONTELUKAST SODIUM
  7. CENTRUM [Concomitant]
     Active Substance: VITAMINS

REACTIONS (4)
  - Oral discomfort [None]
  - Erythema [None]
  - Eye irritation [None]
  - Swelling [None]

NARRATIVE: CASE EVENT DATE: 20180127
